FAERS Safety Report 7571932-0 (Version None)
Quarter: 2011Q2

REPORT INFORMATION
  Report Type: 
  Country: None (occurrence: None)
  Receive Date: 20110624
  Receipt Date: 20110131
  Transmission Date: 20111010
  Serious: No
  Sender: FDA-Public Use
  Company Number: A0911196A

PATIENT
  Age: 39 Year
  Sex: Female

DRUGS (4)
  1. VERAMYST [Suspect]
     Indication: RHINITIS
     Route: 045
     Dates: start: 20110115, end: 20110115
  2. FLUTICASONE PROPIONATE [Suspect]
  3. GUAIFENESIN [Concomitant]
  4. PROAIR HFA [Concomitant]

REACTIONS (2)
  - TREATMENT NONCOMPLIANCE [None]
  - URTICARIA [None]
